FAERS Safety Report 15276419 (Version 4)
Quarter: 2018Q4

REPORT INFORMATION
  Report Type: Spontaneous
  Country: US (occurrence: US)
  Receive Date: 20180814
  Receipt Date: 20181005
  Transmission Date: 20190204
  Serious: Yes (Other)
  Sender: FDA-Public Use
  Company Number: US-BIOCOMPATIBLES UK LTD-2018BTG01746

PATIENT
  Age: 63 Year
  Sex: Male
  Weight: 127 kg

DRUGS (4)
  1. LEUCOVORIN                         /00566701/ [Concomitant]
     Active Substance: LEUCOVORIN
     Indication: TOXICITY TO VARIOUS AGENTS
     Dosage: 100 MG/M2, Q3HOURS
     Route: 042
     Dates: start: 2018
  2. VORAXAZE [Suspect]
     Active Substance: GLUCARPIDASE
     Indication: TOXICITY TO VARIOUS AGENTS
     Dosage: 2000 UNITS, SINGLE
     Dates: start: 20180629, end: 20180629
  3. VORAXAZE [Suspect]
     Active Substance: GLUCARPIDASE
     Dosage: 4000 UNITS, SINGLE
     Dates: start: 20180703, end: 20180703
  4. METHOTREXATE. [Suspect]
     Active Substance: METHOTREXATE
     Indication: PRODUCT USED FOR UNKNOWN INDICATION
     Dosage: UNK
     Dates: start: 20180627

REACTIONS (3)
  - Underdose [Unknown]
  - Renal impairment [Recovering/Resolving]
  - Fluid retention [Unknown]

NARRATIVE: CASE EVENT DATE: 2018
